FAERS Safety Report 23782708 (Version 1)
Quarter: 2024Q2

REPORT INFORMATION
  Report Type: Spontaneous
  Country: US (occurrence: None)
  Receive Date: 20240424
  Receipt Date: 20240424
  Transmission Date: 20240716
  Serious: Yes (Disabling)
  Sender: FDA-Public Use
  Company Number: None

PATIENT
  Age: 5 Year
  Sex: Male
  Weight: 18 kg

DRUGS (3)
  1. MIRALAX [Suspect]
     Active Substance: POLYETHYLENE GLYCOL 3350
     Indication: Constipation
     Dosage: FREQUENCY : AT BEDTIME?
     Route: 048
  2. HYZAL [Concomitant]
  3. HIYA DAILY VITAMIN [Concomitant]

REACTIONS (1)
  - Tic [None]

NARRATIVE: CASE EVENT DATE: 20230402
